FAERS Safety Report 7812444-6 (Version None)
Quarter: 2011Q4

REPORT INFORMATION
  Report Type: 
  Country: None (occurrence: None)
  Receive Date: 20111013
  Receipt Date: 20111011
  Transmission Date: 20120403
  Serious: Yes (Hospitalization)
  Sender: FDA-Public Use
  Company Number: US-PFIZER INC-2011243163

PATIENT
  Sex: Female
  Weight: 33.56 kg

DRUGS (3)
  1. PROTONIX [Suspect]
     Indication: HYPERCHLORHYDRIA
     Dosage: 40 MG, 1X/DAY
     Route: 042
     Dates: start: 20110224
  2. SOLU-MEDROL [Concomitant]
     Dosage: 2 MG, 1X/DAY
     Route: 042
  3. PROTONIX [Suspect]
     Dosage: 30 MG, 1X/DAY
     Route: 042
     Dates: start: 20110418

REACTIONS (2)
  - WRONG TECHNIQUE IN DRUG USAGE PROCESS [None]
  - CELLULITIS [None]
